FAERS Safety Report 8542074 (Version 3)
Quarter: 2013Q1

REPORT INFORMATION
  Report Type: Spontaneous
  Country: JP (occurrence: None)
  Receive Date: 20120424
  Receipt Date: 20130206
  Transmission Date: 20140127
  Serious: Yes (Hospitalization, Other)
  Sender: FDA-Public Use
  Company Number: 2009JP001623

PATIENT
  Age: 27 Year
  Sex: Male

DRUGS (22)
  1. TACROLIMUS [Suspect]
     Indication: LUPUS NEPHRITIS
     Dosage: 3 MG, /D, ORAL
     Route: 048
     Dates: start: 20070521, end: 20110501
  2. VOLTAREN [Suspect]
     Dosage: 75 MG,./D, ORAL
     Route: 048
     Dates: start: 20100513, end: 20101005
  3. VOLTAREN [Suspect]
     Dosage: 75 MG,./D, ORAL
     Route: 048
     Dates: start: 20100513, end: 20101005
  4. PREDNISOLONE [Concomitant]
  5. NEUER (CETRAXATE HYDROCHLORIDE) [Concomitant]
  6. CALCIUM LACTATE (CALCIUM LACTATE) [Concomitant]
  7. ONEALFA (ALFACALCIDOL) [Concomitant]
  8. RABEPRAZOLE SODIUM [Concomitant]
  9. BUFFERIN (ACETYLSALICYLIC ACID) [Concomitant]
  10. LIVALO [Concomitant]
  11. LENDORM [Concomitant]
  12. LOSARTAN POTASSIUM [Concomitant]
  13. FOSAMAX [Concomitant]
  14. MAGNESIUM OXIDE (MAGNESIUM OXIDE) [Concomitant]
  15. LAC B (LACTOBACILLUS BIFIDUS, LYOPHILIZED) [Concomitant]
  16. ALBUMIN TANNATE (ALBUMIN TANNATE) [Concomitant]
  17. NERISONA (DIFLUCORTISONE VALERATE) [Concomitant]
  18. GEBEN (SULFADIAZINE SILVER) [Concomitant]
  19. GASMOTIN (MOSAPRIDE CITRATE) [Concomitant]
  20. OLMESARTAN MEDOXOMIL [Concomitant]
  21. CYCLOPHOSPHAMIDE (CYCLOPHOSPHAMIDE) [Concomitant]
  22. PURSENNID (SENNA ALEXANDRINA LEAF) [Concomitant]

REACTIONS (15)
  - Enterocolitis [None]
  - Pain [None]
  - Osteonecrosis [None]
  - Renal impairment [None]
  - Sjogren^s syndrome [None]
  - Skin ulcer [None]
  - Diarrhoea [None]
  - Gastroenteritis [None]
  - Eczema [None]
  - Cardiovascular disorder [None]
  - Viral infection [None]
  - Skin graft [None]
  - Haematochezia [None]
  - Constipation [None]
  - Condition aggravated [None]
